FAERS Safety Report 7635905-1 (Version None)
Quarter: 2011Q3

REPORT INFORMATION
  Report Type: 
  Country: None (occurrence: None)
  Receive Date: 20110726
  Receipt Date: 20110713
  Transmission Date: 20111222
  Serious: Yes (Other)
  Sender: FDA-Public Use
  Company Number: MX-ELI_LILLY_AND_COMPANY-MX201107004990

PATIENT
  Age: 58 Year
  Sex: Male

DRUGS (4)
  1. ALPRAZOLAM [Concomitant]
  2. SERTRALINE HYDROCHLORIDE [Concomitant]
  3. ZOLPIDEM [Concomitant]
     Indication: INSOMNIA
  4. CYMBALTA [Suspect]
     Indication: DEPRESSION
     Dosage: 60 MG, UNKNOWN

REACTIONS (2)
  - DRUG INTERACTION [None]
  - BLOOD PRESSURE INCREASED [None]
